FAERS Safety Report 4825772-3 (Version None)
Quarter: 2005Q4

REPORT INFORMATION
  Report Type: 
  Country: None (occurrence: None)
  Receive Date: 20051109
  Receipt Date: 20051027
  Transmission Date: 20060501
  Serious: No
  Sender: FDA-Public Use
  Company Number: SUS1-2005-00461

PATIENT

DRUGS (1)
  1. EQUETRO [Suspect]

REACTIONS (1)
  - HYPERSENSITIVITY [None]
